FAERS Safety Report 24163490 (Version 1)
Quarter: 2024Q3

REPORT INFORMATION
  Report Type: Spontaneous
  Country: US (occurrence: None)
  Receive Date: 20240801
  Receipt Date: 20240801
  Transmission Date: 20241017
  Serious: Yes (Hospitalization)
  Sender: Public
  Company Number: None

PATIENT
  Sex: Male

DRUGS (1)
  1. LENALIDOMIDE [Suspect]
     Active Substance: LENALIDOMIDE
     Indication: Plasma cell myeloma
     Dosage: FREQUENCY : AS DIRECTED;?
     Route: 048
     Dates: start: 202406

REACTIONS (6)
  - Urine analysis abnormal [None]
  - Vision blurred [None]
  - Blood pressure decreased [None]
  - Blood calcium decreased [None]
  - Therapy cessation [None]
  - Therapy change [None]
